FAERS Safety Report 17481358 (Version 2)
Quarter: 2020Q1

REPORT INFORMATION
  Report Type: Spontaneous
  Country: US (occurrence: US)
  Receive Date: 20200302
  Receipt Date: 20200330
  Transmission Date: 20200409
  Serious: No
  Sender: FDA-Public Use
  Company Number: US-DSJP-DSU-2020-105921

PATIENT

DRUGS (1)
  1. TURALIO [Suspect]
     Active Substance: PEXIDARTINIB HYDROCHLORIDE
     Indication: NEOPLASM
     Dosage: 400 MG, BID
     Route: 048
     Dates: start: 20200124

REACTIONS (4)
  - Abdominal discomfort [Unknown]
  - Off label use [Not Recovered/Not Resolved]
  - Hair colour changes [Not Recovered/Not Resolved]
  - Arthralgia [Not Recovered/Not Resolved]

NARRATIVE: CASE EVENT DATE: 2020
